FAERS Safety Report 7418824-5 (Version None)
Quarter: 2011Q2

REPORT INFORMATION
  Report Type: 
  Country: None (occurrence: None)
  Receive Date: 20110415
  Receipt Date: 20110410
  Transmission Date: 20111010
  Serious: Yes (Hospitalization, Disabling)
  Sender: FDA-Public Use
  Company Number: B0708510A

PATIENT
  Sex: Male
  Weight: 85 kg

DRUGS (5)
  1. REPAGLINIDE [Concomitant]
     Indication: DIABETES MELLITUS
     Dosage: 1MG PER DAY
     Route: 048
     Dates: start: 20030101
  2. TRIMETHOPRIM + SULFAMETHOXAZOLE [Concomitant]
     Dosage: 480MG TWO TIMES PER WEEK
     Route: 048
     Dates: start: 20080101
  3. OFATUMUMAB [Suspect]
     Dosage: 2000MG WEEKLY
     Route: 042
     Dates: start: 20110224
  4. METFORMIN HCL [Concomitant]
     Indication: DIABETES MELLITUS
     Dosage: 850MG TWICE PER DAY
     Route: 048
     Dates: start: 20030101
  5. ASPIRIN [Concomitant]
     Dosage: 100MG PER DAY
     Route: 048
     Dates: start: 20000101

REACTIONS (1)
  - CELLULITIS [None]
